FAERS Safety Report 20686359 (Version 1)
Quarter: 2022Q2

REPORT INFORMATION
  Report Type: Spontaneous
  Country: US (occurrence: US)
  Receive Date: 20220407
  Receipt Date: 20220407
  Transmission Date: 20220721
  Serious: No
  Sender: FDA-Public Use
  Company Number: US-JAZZ-2022-US-006115

PATIENT
  Sex: Male

DRUGS (6)
  1. SUNOSI [Suspect]
     Active Substance: SOLRIAMFETOL
     Indication: Narcolepsy
     Dosage: UNK
  2. SUNOSI [Suspect]
     Active Substance: SOLRIAMFETOL
     Indication: Cataplexy
  3. VITAMINS [Concomitant]
     Active Substance: VITAMINS
     Dosage: 0010
     Dates: start: 20140610
  4. FLONASE ALLERGY RELIEF [Concomitant]
     Active Substance: FLUTICASONE PROPIONATE
     Dosage: 0000
     Dates: start: 20150915
  5. ALLEGRA D-12 HOUR [Concomitant]
     Active Substance: FEXOFENADINE HYDROCHLORIDE\PSEUDOEPHEDRINE HYDROCHLORIDE
     Dosage: 0000
     Dates: start: 20150915
  6. VITAMIN C [Concomitant]
     Active Substance: ASCORBIC ACID
     Dosage: 0000
     Dates: start: 20200201

REACTIONS (1)
  - Drug ineffective [Unknown]
